FAERS Safety Report 6221470-2 (Version None)
Quarter: 2009Q2

REPORT INFORMATION
  Report Type: 
  Country: None (occurrence: None)
  Receive Date: 20090610
  Receipt Date: 20081216
  Transmission Date: 20091009
  Serious: Yes (Life-Threatening)
  Sender: FDA-Public Use
  Company Number: DK-PFIZER INC-2008097520

PATIENT
  Sex: Female
  Weight: 78 kg

DRUGS (1)
  1. SOLU-MEDROL [Suspect]
     Indication: MULTIPLE SCLEROSIS
     Route: 042
     Dates: start: 20081023, end: 20081023

REACTIONS (4)
  - BLINDNESS [None]
  - GENERALISED ERYTHEMA [None]
  - MALAISE [None]
  - TACHYCARDIA [None]
